FAERS Safety Report 7088603-X (Version None)
Quarter: 2010Q4

REPORT INFORMATION
  Report Type: 
  Country: None (occurrence: None)
  Receive Date: 20101029
  Receipt Date: 20101013
  Transmission Date: 20110411
  Serious: Yes (Hospitalization, Other)
  Sender: FDA-Public Use
  Company Number: ACO_02751_2010

PATIENT
  Sex: Female

DRUGS (11)
  1. AMPYRA [Suspect]
     Indication: PRODUCT USED FOR UNKNOWN INDICATION
     Dosage: (10 MG BID ORAL)
     Route: 048
     Dates: start: 20100623, end: 20100910
  2. BACLOFEN [Concomitant]
  3. TYLENOL (CAPLET) [Concomitant]
  4. AMBIEN [Concomitant]
  5. DIFLUNISAL [Concomitant]
  6. ASPIRIN [Concomitant]
  7. VITAMIN B12 NOS [Concomitant]
  8. OS-CAL /00108001/ [Concomitant]
  9. METHOTREXATE [Concomitant]
  10. COLACE [Concomitant]
  11. CASCARA /00143201/ [Concomitant]

REACTIONS (5)
  - BLOOD UREA INCREASED [None]
  - CONVULSION [None]
  - MULTIPLE SCLEROSIS RELAPSE [None]
  - NEUROGENIC BLADDER [None]
  - TONGUE BITING [None]
